FAERS Safety Report 21569886 (Version 1)
Quarter: 2022Q4

REPORT INFORMATION
  Report Type: Report from Study
  Country: US (occurrence: US)
  Receive Date: 20221109
  Receipt Date: 20221109
  Transmission Date: 20230112
  Serious: Yes (Other)
  Sender: FDA-Public Use
  Company Number: US-ABBVIE-4191564

PATIENT
  Sex: Male

DRUGS (1)
  1. IMBRUVICA [Suspect]
     Active Substance: IBRUTINIB
     Indication: Chronic lymphocytic leukaemia
     Route: 048
     Dates: start: 20210101

REACTIONS (3)
  - Surgery [Unknown]
  - Post procedural haemorrhage [Recovering/Resolving]
  - Post procedural contusion [Recovering/Resolving]

NARRATIVE: CASE EVENT DATE: 20220101
